FAERS Safety Report 18001445 (Version 1)
Quarter: 2020Q3

REPORT INFORMATION
  Report Type: Spontaneous
  Country: FR (occurrence: FR)
  Receive Date: 20200709
  Receipt Date: 20200709
  Transmission Date: 20201103
  Serious: Yes (Other)
  Sender: FDA-Public Use
  Company Number: FR-JNJFOC-20200704928

PATIENT
  Age: 72 Year
  Sex: Female

DRUGS (1)
  1. XARELTO [Suspect]
     Active Substance: RIVAROXABAN
     Indication: ARRHYTHMIA
     Dosage: 20 MG, QD
     Route: 048

REACTIONS (9)
  - Sensory disturbance [Unknown]
  - Head discomfort [Unknown]
  - Disorientation [Unknown]
  - Feeling abnormal [Unknown]
  - Fall [Unknown]
  - Dry mouth [Unknown]
  - Headache [Unknown]
  - Pain [Unknown]
  - Feeling cold [Unknown]

NARRATIVE: CASE EVENT DATE: 202006
